FAERS Safety Report 10428352 (Version 1)
Quarter: 2014Q3

REPORT INFORMATION
  Report Type: Spontaneous
  Country: US (occurrence: US)
  Receive Date: 20140903
  Receipt Date: 20140903
  Transmission Date: 20150326
  Serious: Yes (Hospitalization)
  Sender: FDA-Public Use
  Company Number: US-PFIZER INC-2014242241

PATIENT
  Age: 13 Year
  Sex: Male
  Weight: 36.28 kg

DRUGS (2)
  1. GENOTROPIN [Suspect]
     Active Substance: SOMATROPIN
     Indication: DWARFISM
  2. GENOTROPIN [Suspect]
     Active Substance: SOMATROPIN
     Indication: HYPOPITUITARISM
     Dosage: 1.8 MG, 6 DAYS PER WEEK
     Route: 058
     Dates: start: 201403, end: 20140523

REACTIONS (1)
  - Lower limb fracture [Recovering/Resolving]
